FAERS Safety Report 20430376 (Version 1)
Quarter: 2022Q1

REPORT INFORMATION
  Report Type: Report from Study
  Country: FR (occurrence: FR)
  Receive Date: 20220204
  Receipt Date: 20220204
  Transmission Date: 20220423
  Serious: Yes (Hospitalization)
  Sender: FDA-Public Use
  Company Number: FR-SERVIER-S20006927

PATIENT

DRUGS (8)
  1. PEGASPARGASE [Suspect]
     Active Substance: PEGASPARGASE
     Indication: Acute lymphocytic leukaemia
     Dosage: 2625 IU, D15, D43
     Route: 042
     Dates: start: 20200316, end: 20200421
  2. CYCLOPHOSPHAMIDE [Suspect]
     Active Substance: CYCLOPHOSPHAMIDE
     Indication: Acute lymphocytic leukaemia
     Dosage: 1050 MG, D1 AND D29
     Route: 042
     Dates: start: 20200316, end: 20200407
  3. MERCAPTOPURINE [Suspect]
     Active Substance: MERCAPTOPURINE
     Indication: Acute lymphocytic leukaemia
     Dosage: 63 MG, D1,D14,D29,D42
     Route: 048
     Dates: start: 20200316, end: 20200420
  4. CYTARABINE [Suspect]
     Active Substance: CYTARABINE
     Indication: Acute lymphocytic leukaemia
     Dosage: 78.7 MG, D3,D6,D10,D13,D31
     Route: 042
     Dates: start: 20200304, end: 20200419
  5. CYTARABINE [Suspect]
     Active Substance: CYTARABINE
     Dosage: 30 MG, D3,D31
     Route: 037
     Dates: start: 20200304, end: 20200409
  6. VINCRISTINE SULFATE [Suspect]
     Active Substance: VINCRISTINE SULFATE
     Indication: Acute lymphocytic leukaemia
     Dosage: 1.6 MG, D15,D22,D43,D50
     Route: 042
     Dates: start: 20200316, end: 20200428
  7. METHOTREXATE [Suspect]
     Active Substance: METHOTREXATE
     Indication: Acute lymphocytic leukaemia
     Dosage: 12 MG, D3,D31
     Route: 037
     Dates: start: 20200304, end: 20200409
  8. HYDROCORTISONE HEMISUCCINATE ANHYDROUS [Suspect]
     Active Substance: HYDROCORTISONE HEMISUCCINATE ANHYDROUS
     Indication: Acute lymphocytic leukaemia
     Dosage: 15 MG, D3,D31
     Route: 037
     Dates: start: 20200304, end: 20200409

REACTIONS (1)
  - Pseudomonas infection [Not Recovered/Not Resolved]

NARRATIVE: CASE EVENT DATE: 20200502
